FAERS Safety Report 16360430 (Version 1)
Quarter: 2019Q2

REPORT INFORMATION
  Report Type: Spontaneous
  Country: CN (occurrence: CN)
  Receive Date: 20190528
  Receipt Date: 20190528
  Transmission Date: 20190711
  Serious: Yes (Other)
  Sender: FDA-Public Use
  Company Number: CN-GLAXOSMITHKLINE-CN2019093862

PATIENT
  Age: 33 Year
  Sex: Male
  Weight: 78 kg

DRUGS (2)
  1. ALLOPURINOL. [Concomitant]
     Active Substance: ALLOPURINOL
     Indication: GOUTY ARTHRITIS
     Dosage: 0.25 G, QD
     Route: 048
     Dates: start: 20190503, end: 20190503
  2. VOLTAREN [Suspect]
     Active Substance: DICLOFENAC SODIUM
     Indication: GOUTY ARTHRITIS
     Dosage: 75 MG, QD
     Route: 048
     Dates: start: 20190503, end: 20190503

REACTIONS (1)
  - Anaphylactoid reaction [Recovering/Resolving]

NARRATIVE: CASE EVENT DATE: 20190503
